FAERS Safety Report 11952568 (Version 1)
Quarter: 2016Q1

REPORT INFORMATION
  Report Type: Spontaneous
  Country: DK (occurrence: DK)
  Receive Date: 20160125
  Receipt Date: 20160125
  Transmission Date: 20160526
  Serious: Yes (Hospitalization)
  Sender: FDA-Public Use
  Company Number: PHHY2016DK006598

PATIENT
  Age: 26 Year
  Sex: Female

DRUGS (1)
  1. LINDYNETTE [Suspect]
     Active Substance: ETHINYL ESTRADIOL\GESTODENE
     Indication: CONTRACEPTION
     Route: 048
     Dates: start: 20130417, end: 20150527

REACTIONS (5)
  - Pulmonary oedema [Recovered/Resolved]
  - Dyspnoea [Not Recovered/Not Resolved]
  - Pleuritic pain [Recovered/Resolved]
  - Pulmonary thrombosis [Recovered/Resolved with Sequelae]
  - Chest pain [Unknown]

NARRATIVE: CASE EVENT DATE: 201505
